FAERS Safety Report 10216903 (Version 7)
Quarter: 2015Q1

REPORT INFORMATION
  Report Type: Report from Study
  Country: US (occurrence: US)
  Receive Date: 20140604
  Receipt Date: 20150112
  Transmission Date: 20150720
  Serious: Yes (Hospitalization)
  Sender: FDA-Public Use
  Company Number: US-BRISTOL-MYERS SQUIBB COMPANY-20652525

PATIENT
  Age: 71 Year
  Sex: Female
  Weight: 89.79 kg

DRUGS (13)
  1. A + D OINTMENT [Concomitant]
     Dosage: 1DF=1 UNITS NOS
     Dates: start: 20140310
  2. OXYCODONE [Concomitant]
     Active Substance: OXYCODONE
     Dosage: 5 MG, UNK
     Dates: start: 20140108
  3. CIPROFLOXACIN. [Concomitant]
     Active Substance: CIPROFLOXACIN
  4. CELECOXIB. [Concomitant]
     Active Substance: CELECOXIB
     Dosage: 200 MG, UNK
     Dates: start: 20140108
  5. PANTOPRAZOLE [Concomitant]
     Active Substance: PANTOPRAZOLE SODIUM
     Dosage: 40 MG, UNK
     Dates: start: 20140108
  6. SIMVASTATIN. [Concomitant]
     Active Substance: SIMVASTATIN
     Dosage: 5 MG, UNK
     Dates: start: 20140108
  7. IPILIMUMAB [Suspect]
     Active Substance: IPILIMUMAB
     Indication: OVARIAN CANCER
     Dosage: TOTAL DOSE 2752MG  17FEB-10MAR:927MG  31MAR-31MAR:898MG
     Route: 042
     Dates: start: 20140217, end: 20140331
  8. SLOW-MAG [Concomitant]
     Active Substance: MAGNESIUM CHLORIDE
     Dosage: 71.5 MG, UNK
     Dates: start: 20140108
  9. STEROID CREAM [Concomitant]
     Active Substance: UNSPECIFIED INGREDIENT
     Dosage: 1 G, UNK
     Dates: start: 20140227
  10. POTASSIUM CHLORIDE. [Concomitant]
     Active Substance: POTASSIUM CHLORIDE
  11. ATROPINE [Concomitant]
     Active Substance: ATROPINE
  12. WARFARIN SODIUM. [Concomitant]
     Active Substance: WARFARIN SODIUM
     Dosage: 10 MG, UNK
     Dates: start: 20140108
  13. SODIUM CHLORIDE. [Concomitant]
     Active Substance: SODIUM CHLORIDE

REACTIONS (2)
  - Diarrhoea [Recovered/Resolved with Sequelae]
  - Pleural effusion [Recovered/Resolved]

NARRATIVE: CASE EVENT DATE: 20140414
